FAERS Safety Report 11265759 (Version 1)
Quarter: 2015Q3

REPORT INFORMATION
  Report Type: Report from Study
  Country: CN (occurrence: CN)
  Receive Date: 20150713
  Receipt Date: 20150713
  Transmission Date: 20151125
  Serious: Yes (Other)
  Sender: FDA-Public Use
  Company Number: CN-BAXTER-2015BAX038268

PATIENT
  Sex: Female

DRUGS (5)
  1. QIFUMEI [Suspect]
     Active Substance: SEVOFLURANE
     Dosage: 0.5 MAC
     Route: 055
  2. QIFUMEI [Suspect]
     Active Substance: SEVOFLURANE
     Indication: INDUCTION OF ANAESTHESIA
     Route: 055
  3. QIFUMEI [Suspect]
     Active Substance: SEVOFLURANE
     Dosage: 1 MAC
     Route: 055
  4. ATROPINE. [Suspect]
     Active Substance: ATROPINE
     Indication: PRODUCT USED FOR UNKNOWN INDICATION
     Route: 030
  5. QIFUMEI [Suspect]
     Active Substance: SEVOFLURANE
     Dosage: STABILIZED TO 0.8 TO 1.2 MAC WITH AN OXYGEN FLOW RATE OF 2 L/MIN
     Route: 055

REACTIONS (1)
  - Agitation postoperative [Unknown]
